FAERS Safety Report 4704113-6 (Version None)
Quarter: 2005Q2

REPORT INFORMATION
  Report Type: 
  Country: None (occurrence: None)
  Receive Date: 20050630
  Receipt Date: 20020710
  Transmission Date: 20051028
  Serious: Yes (Other)
  Sender: FDA-Public Use
  Company Number: SE-AMGEN-02070203

PATIENT
  Sex: Female

DRUGS (2)
  1. ENBREL [Suspect]
     Indication: RHEUMATOID ARTHRITIS
     Route: 058
     Dates: start: 19990507
  2. ENBREL [Suspect]

REACTIONS (4)
  - METABOLIC DISORDER [None]
  - NONSPECIFIC REACTION [None]
  - WEIGHT ABNORMAL [None]
  - WEIGHT INCREASED [None]
